FAERS Safety Report 23852200 (Version 1)
Quarter: 2024Q2

REPORT INFORMATION
  Report Type: Spontaneous
  Country: US (occurrence: None)
  Receive Date: 20240513
  Receipt Date: 20240513
  Transmission Date: 20240716
  Serious: Yes (Death)
  Sender: FDA-Public Use
  Company Number: None

PATIENT
  Age: 71 Year
  Sex: Male
  Weight: 57.15 kg

DRUGS (6)
  1. CYCLOPHOSPHAMIDE [Suspect]
     Active Substance: CYCLOPHOSPHAMIDE
     Indication: Amyloidosis
     Dosage: OTHER FREQUENCY : 6 CAP WEEKLY;?
     Route: 048
     Dates: start: 20231201
  2. TORSEMIDE [Concomitant]
     Active Substance: TORSEMIDE
  3. METFORMIN HYDROCHLORIDE [Concomitant]
     Active Substance: METFORMIN HYDROCHLORIDE
  4. PRAVASTATIN [Concomitant]
     Active Substance: PRAVASTATIN
  5. ASPIRIN [Concomitant]
     Active Substance: ASPIRIN
  6. ACYCLOVIR [Concomitant]
     Active Substance: ACYCLOVIR

REACTIONS (2)
  - Amyloidosis [None]
  - Cardiac failure chronic [None]

NARRATIVE: CASE EVENT DATE: 20240419
